FAERS Safety Report 10240747 (Version 1)
Quarter: 2014Q2

REPORT INFORMATION
  Report Type: Spontaneous
  Country: US (occurrence: US)
  Receive Date: 20140617
  Receipt Date: 20140617
  Transmission Date: 20141212
  Serious: No
  Sender: FDA-Public Use
  Company Number: US-TEVA-488454USA

PATIENT
  Sex: Female

DRUGS (1)
  1. QNASL [Suspect]
     Dates: start: 20140518

REACTIONS (1)
  - Drug effect decreased [Unknown]
